FAERS Safety Report 7797322-3 (Version None)
Quarter: 2011Q4

REPORT INFORMATION
  Report Type: 
  Country: None (occurrence: None)
  Receive Date: 20111005
  Receipt Date: 20110929
  Transmission Date: 20120403
  Serious: Yes (Death)
  Sender: FDA-Public Use
  Company Number: US-SANOFI-AVENTIS-2011SA063901

PATIENT
  Sex: Male

DRUGS (3)
  1. HORMONES AND RELATED AGENTS [Concomitant]
     Dosage: 1 GIVEN
  2. TAXOTERE [Suspect]
     Indication: PROSTATE CANCER
     Route: 041
     Dates: start: 20101115, end: 20101115
  3. TAXOTERE [Suspect]
     Route: 041
     Dates: start: 20101130, end: 20101130

REACTIONS (1)
  - DEATH [None]
